FAERS Safety Report 11136067 (Version 1)
Quarter: 2015Q2

REPORT INFORMATION
  Report Type: Spontaneous
  Country: PT (occurrence: PT)
  Receive Date: 20150526
  Receipt Date: 20150526
  Transmission Date: 20150821
  Serious: Yes (Death)
  Sender: FDA-Public Use
  Company Number: PT-ACTAVIS-2015-10296

PATIENT
  Age: 69 Year
  Sex: Male

DRUGS (1)
  1. PACLITAXEL ACTAVIS [Suspect]
     Active Substance: PACLITAXEL
     Indication: HEAD AND NECK CANCER
     Dosage: 137 MG, DAILY
     Route: 042
     Dates: start: 20150424, end: 20150424

REACTIONS (2)
  - Anaphylactic shock [Fatal]
  - Death [Fatal]

NARRATIVE: CASE EVENT DATE: 20150424
